FAERS Safety Report 11516302 (Version 2)
Quarter: 2015Q4

REPORT INFORMATION
  Report Type: Spontaneous
  Country: FR (occurrence: FR)
  Receive Date: 20150917
  Receipt Date: 20151029
  Transmission Date: 20160304
  Serious: Yes (Life-Threatening, Hospitalization, Other)
  Sender: FDA-Public Use
  Company Number: FR-ASTRAZENECA-2015SE89663

PATIENT
  Age: 20535 Day
  Sex: Female
  Weight: 90 kg

DRUGS (19)
  1. BYDUREON [Suspect]
     Active Substance: EXENATIDE
     Route: 065
     Dates: start: 20150610, end: 20150731
  2. IXPRIM [Concomitant]
     Active Substance: ACETAMINOPHEN\TRAMADOL HYDROCHLORIDE
     Dosage: 2-4 DF DAILY
  3. DIAMICRON [Concomitant]
     Active Substance: GLICLAZIDE
  4. GLIMEPIRIDE. [Concomitant]
     Active Substance: GLIMEPIRIDE
     Indication: DIABETES MELLITUS
  5. LEVOTHYROX [Concomitant]
     Active Substance: LEVOTHYROXINE
     Indication: HYPOTHYROIDISM
  6. INSULIN [Concomitant]
     Active Substance: INSULIN NOS
     Dosage: 4-9 IU  TID POSTPRANDIAL CAPILLARY GLYCEMIA UPPER THAN 1.8 G/L
  7. MOVICOL [Concomitant]
     Active Substance: POLYETHYLENE GLYCOL 3350\POTASSIUM CHLORIDE\SODIUM BICARBONATE\SODIUM CHLORIDE
  8. LOVENOX [Concomitant]
     Active Substance: ENOXAPARIN SODIUM
  9. METFORMIN [Concomitant]
     Active Substance: METFORMIN HYDROCHLORIDE
     Indication: DIABETES MELLITUS
  10. CRESTOR [Concomitant]
     Active Substance: ROSUVASTATIN CALCIUM
     Indication: DYSLIPIDAEMIA
  11. JANUMET [Concomitant]
     Active Substance: METFORMIN HYDROCHLORIDE\SITAGLIPTIN PHOSPHATE
  12. GLIMEPIRIDE. [Concomitant]
     Active Substance: GLIMEPIRIDE
     Indication: DIABETES MELLITUS
  13. LEVOTHYROX [Concomitant]
     Active Substance: LEVOTHYROXINE
     Indication: HYPOTHYROIDISM
  14. LANTUS [Concomitant]
     Active Substance: INSULIN GLARGINE
  15. PANTOPRAZOLE [Concomitant]
     Active Substance: PANTOPRAZOLE SODIUM
  16. COKENZEN [Concomitant]
     Active Substance: CANDESARTAN CILEXETIL\HYDROCHLOROTHIAZIDE
     Indication: HYPERTENSION
     Dosage: 16 MG + 12.5 MG DAILY
  17. PREVISCAN [Concomitant]
     Active Substance: FLUINDIONE
     Dosage: 0.5 DF OR 0.75 DF EACH OTHER DAY
  18. LOVENOX [Concomitant]
     Active Substance: ENOXAPARIN SODIUM
  19. CERIS [Concomitant]
     Active Substance: TROSPIUM CHLORIDE

REACTIONS (9)
  - Rash [Unknown]
  - Oesophageal varices haemorrhage [Unknown]
  - Shock haemorrhagic [Unknown]
  - Hepatic steatosis [Unknown]
  - Vomiting [Unknown]
  - Pyrexia [Unknown]
  - Hepatomegaly [Unknown]
  - Portal vein thrombosis [Unknown]
  - Lipase increased [Unknown]

NARRATIVE: CASE EVENT DATE: 20150731
